FAERS Safety Report 20771814 (Version 4)
Quarter: 2022Q2

REPORT INFORMATION
  Report Type: Spontaneous
  Country: BR (occurrence: BR)
  Receive Date: 20220430
  Receipt Date: 20220531
  Transmission Date: 20220721
  Serious: Yes (Hospitalization, Other)
  Sender: FDA-Public Use
  Company Number: BR-BoehringerIngelheim-2022-BI-167381

PATIENT
  Age: 82 Year
  Sex: Female
  Weight: 85 kg

DRUGS (33)
  1. OFEV [Suspect]
     Active Substance: NINTEDANIB
     Indication: Idiopathic pulmonary fibrosis
     Dates: start: 202107
  2. ATROVENT [Concomitant]
     Active Substance: IPRATROPIUM BROMIDE
     Indication: Product used for unknown indication
     Route: 055
  3. MACRODANTIN [Concomitant]
     Active Substance: NITROFURANTOIN
     Indication: Product used for unknown indication
  4. canabediol [Concomitant]
     Indication: Product used for unknown indication
  5. CARVIL [Concomitant]
     Indication: Product used for unknown indication
  6. BROMAZEPAM [Concomitant]
     Active Substance: BROMAZEPAM
     Indication: Product used for unknown indication
  7. LEVOTHYROXINE [Concomitant]
     Active Substance: LEVOTHYROXINE
     Indication: Product used for unknown indication
  8. VESICARE [Concomitant]
     Active Substance: SOLIFENACIN SUCCINATE
     Indication: Product used for unknown indication
  9. BAMIFYLLINE HYDROCHLORIDE [Concomitant]
     Active Substance: BAMIFYLLINE HYDROCHLORIDE
     Indication: Product used for unknown indication
     Dosage: AT 8 AM AND 8 PM
     Route: 048
  10. PURAN [Concomitant]
     Active Substance: LEVOTHYROXINE SODIUM
     Indication: Product used for unknown indication
     Dosage: AT 12 AM
     Route: 048
  11. ASPIRIN [Concomitant]
     Active Substance: ASPIRIN
     Indication: Product used for unknown indication
     Dosage: AT 12 AM
     Route: 048
  12. NORVASC [Concomitant]
     Active Substance: AMLODIPINE BESYLATE
     Indication: Product used for unknown indication
     Dosage: AT 12 AM
     Route: 048
  13. HYDRALAZINE HYDROCHLORIDE [Concomitant]
     Active Substance: HYDRALAZINE HYDROCHLORIDE
     Indication: Product used for unknown indication
     Dosage: AT 6 AM, 2 PM AND 10 PM
     Route: 048
  14. PANTOZOL [Concomitant]
     Active Substance: PANTOPRAZOLE SODIUM
     Indication: Product used for unknown indication
     Dosage: AT 6 AM
     Route: 048
  15. LEVOMEPROMAZINE [Concomitant]
     Active Substance: LEVOMEPROMAZINE
     Indication: Product used for unknown indication
     Dosage: AT 8 PM
     Route: 048
  16. BROMAZEPAM [Concomitant]
     Active Substance: BROMAZEPAM
     Indication: Product used for unknown indication
     Dosage: AT 8 PM
     Route: 048
  17. presnisona [Concomitant]
     Indication: Product used for unknown indication
     Dosage: AT 8 AM
     Route: 048
  18. LASIX [Concomitant]
     Active Substance: FUROSEMIDE
     Indication: Product used for unknown indication
     Dosage: AT 10 AM AND 4 PM
     Route: 048
  19. RIVOTRIL [Concomitant]
     Active Substance: CLONAZEPAM
     Indication: Insomnia
     Dosage: 2.5 MG/ML, 3 DROPS IN CASE OF INSOMNIA
     Route: 048
  20. MORPHINE SULFATE [Concomitant]
     Active Substance: MORPHINE SULFATE
     Indication: Respiratory disorder
     Dosage: HALF TABLET. IN CASE OF RESPIRATORY DISCOMFORT EXTRA DOSE OF 5 MG.
     Route: 048
  21. BUDESONIDE\FORMOTEROL FUMARATE DIHYDRATE [Concomitant]
     Active Substance: BUDESONIDE\FORMOTEROL FUMARATE DIHYDRATE
     Indication: Product used for unknown indication
     Dosage: 6 PLUS 200 MCG/INITIAL DOSE, 2 JET ORAL INHALATION, AT 6 AM, 12 AM, 6 PM AND 12 PM.
     Route: 055
  22. SPIRIVA RESPIMAT [Concomitant]
     Active Substance: TIOTROPIUM BROMIDE
     Indication: Product used for unknown indication
     Dosage: 2 PUFFS AT 2 PM
     Route: 055
  23. ALBUTEROL [Concomitant]
     Active Substance: ALBUTEROL
     Indication: Product used for unknown indication
     Dosage: 100MCG/DOSE, SPRAY, 3 JET ORAL INHALATION
     Route: 055
  24. DERMODEX [Concomitant]
     Indication: Product used for unknown indication
     Dosage: AT 12 PM, 8 AM, AND 6 PM?INGUINAL
     Route: 061
  25. reparil [Concomitant]
     Indication: Contusion
     Dosage: AT 6 AM, 2 PM AND 10 PM
     Route: 061
  26. CETONEO [Concomitant]
     Indication: Product used for unknown indication
     Dosage: AT 6 PM, THIN LAYER ON TOES TWICE
     Route: 061
  27. bepantol derma [Concomitant]
     Indication: Product used for unknown indication
     Dosage: AT 12 PM, 8 AM AND 4 PM?AT DIAPER CHANGES
     Route: 061
  28. AZOPT [Concomitant]
     Active Substance: BRINZOLAMIDE
     Indication: Product used for unknown indication
     Dosage: AT 8 AM AND 8 PM?A DROP IN EACH EYE
     Route: 047
  29. CARBOXYMETHYLCELLULOSE SODIUM [Concomitant]
     Active Substance: CARBOXYMETHYLCELLULOSE SODIUM
     Indication: Product used for unknown indication
     Dosage: A DROP IN EACH EYE
     Route: 047
  30. CARVEDILOL [Concomitant]
     Active Substance: CARVEDILOL
     Indication: Product used for unknown indication
     Dosage: AT 10 AM AND 10 PM
     Route: 048
  31. HOMATROPINE METHYLBROMIDE [Concomitant]
     Active Substance: HOMATROPINE METHYLBROMIDE
     Indication: Product used for unknown indication
     Dosage: 75 MG/ML, 40 ORAL DROPS ? AT 6 AM, 2 PM AND 10 PM
     Route: 048
  32. DULCOLAX NOS [Concomitant]
     Active Substance: BISACODYL OR DOCUSATE SODIUM
     Indication: Product used for unknown indication
  33. DIBUCAINE\POLICRESULEN [Concomitant]
     Active Substance: DIBUCAINE\POLICRESULEN
     Indication: Product used for unknown indication
     Dosage: 12 PM, 8 AM AND 4 PM
     Route: 054

REACTIONS (7)
  - COVID-19 [Recovered/Resolved]
  - Urinary tract infection [Recovered/Resolved]
  - Acute respiratory failure [Recovered/Resolved]
  - COVID-19 [Recovered/Resolved]
  - Cough [Recovered/Resolved]
  - Blood glucose decreased [Recovered/Resolved]
  - Respiratory disorder [Recovered/Resolved]

NARRATIVE: CASE EVENT DATE: 20210801
